FAERS Safety Report 18572824 (Version 6)
Quarter: 2021Q1

REPORT INFORMATION
  Report Type: Spontaneous
  Country: US (occurrence: US)
  Receive Date: 20201203
  Receipt Date: 20210130
  Transmission Date: 20210419
  Serious: No
  Sender: FDA-Public Use
  Company Number: US-UNITED THERAPEUTICS-UNT-2020-018303

PATIENT
  Age: 59 Year
  Sex: Female
  Weight: 77.1 kg

DRUGS (10)
  1. TYVASO [Suspect]
     Active Substance: TREPROSTINIL
     Indication: PULMONARY ARTERIAL HYPERTENSION
     Dosage: UNK
     Dates: start: 20201023
  2. TYVASO [Suspect]
     Active Substance: TREPROSTINIL
     Dosage: 18 ?G
     Dates: start: 2020, end: 2020
  3. OFEV [Suspect]
     Active Substance: NINTEDANIB
     Indication: IDIOPATHIC PULMONARY FIBROSIS
     Dosage: 150 MG, Q12H (1 IN 12 HOURS)
     Route: 048
     Dates: start: 20200916
  4. OFEV [Suspect]
     Active Substance: NINTEDANIB
     Dosage: 100 MG, UNK
     Route: 048
  5. OPSUMIT [Concomitant]
     Active Substance: MACITENTAN
     Indication: PRODUCT USED FOR UNKNOWN INDICATION
     Dosage: UNK
     Route: 065
  6. OFEV [Suspect]
     Active Substance: NINTEDANIB
     Dosage: 200 MG, QD (1 EVERY 1 DAY)
     Route: 048
  7. TYVASO [Suspect]
     Active Substance: TREPROSTINIL
     Dosage: 18?54 ?G, QID
  8. TYVASO [Suspect]
     Active Substance: TREPROSTINIL
     Dosage: 36 ?G
     Dates: start: 2020, end: 2020
  9. TYVASO [Suspect]
     Active Substance: TREPROSTINIL
     Dosage: UNK
     Dates: start: 2020, end: 20210105
  10. REVATIO [Concomitant]
     Active Substance: SILDENAFIL CITRATE
     Indication: PRODUCT USED FOR UNKNOWN INDICATION
     Dosage: UNK
     Route: 065

REACTIONS (13)
  - Feeling abnormal [Unknown]
  - Dysgeusia [Unknown]
  - Throat irritation [Not Recovered/Not Resolved]
  - Headache [Unknown]
  - Dysphagia [Not Recovered/Not Resolved]
  - Nausea [Recovered/Resolved]
  - Dyspepsia [Not Recovered/Not Resolved]
  - Asthma [Unknown]
  - Oropharyngeal pain [Not Recovered/Not Resolved]
  - Seasonal allergy [Unknown]
  - Wheezing [Unknown]
  - Dyspnoea [Unknown]
  - Liver function test increased [Unknown]

NARRATIVE: CASE EVENT DATE: 2020
